FAERS Safety Report 5413113-2 (Version None)
Quarter: 2007Q3

REPORT INFORMATION
  Report Type: 
  Country: None (occurrence: None)
  Receive Date: 20070813
  Receipt Date: 20070801
  Transmission Date: 20080115
  Serious: Yes (Other)
  Sender: FDA-Public Use
  Company Number: US-PFIZER INC-2007064007

PATIENT
  Sex: Female
  Weight: 59 kg

DRUGS (3)
  1. XALATAN [Suspect]
     Indication: INTRAOCULAR PRESSURE TEST
  2. ATENOLOL [Concomitant]
     Indication: BLOOD PRESSURE
  3. DYAZIDE [Concomitant]

REACTIONS (2)
  - EYE INFECTION [None]
  - IMMUNOGLOBULINS INCREASED [None]
